FAERS Safety Report 11272959 (Version 2)
Quarter: 2015Q3

REPORT INFORMATION
  Report Type: Spontaneous
  Country: US (occurrence: US)
  Receive Date: 20150715
  Receipt Date: 20150924
  Transmission Date: 20151125
  Serious: Yes (Hospitalization)
  Sender: FDA-Public Use
  Company Number: US-PFIZER INC-2015233578

PATIENT
  Age: 79 Year
  Sex: Female

DRUGS (1)
  1. ESTRING [Suspect]
     Active Substance: ESTRADIOL
     Indication: BONE DISORDER
     Dosage: UNK

REACTIONS (3)
  - Vulvovaginal discomfort [Not Recovered/Not Resolved]
  - Product use issue [Unknown]
  - Vulvovaginal pain [Not Recovered/Not Resolved]
